FAERS Safety Report 9284142 (Version 1)
Quarter: 2013Q2

REPORT INFORMATION
  Report Type: Spontaneous
  Country: IT (occurrence: None)
  Receive Date: 20130502
  Receipt Date: 20130502
  Transmission Date: 20140414
  Serious: Yes (Life-Threatening, Other)
  Sender: FDA-Public Use
  Company Number: 1693355

PATIENT
  Age: 49 Year
  Sex: Female

DRUGS (1)
  1. PACLITAXEL [Suspect]
     Indication: CHEMOTHERAPY
     Dosage: 140 MG, CYCLICAL, INTRAVENOUS DRIP
     Dates: start: 20130424, end: 20130424

REACTIONS (3)
  - Cardiac arrest [None]
  - Bronchospasm [None]
  - Erythema [None]
